FAERS Safety Report 16990204 (Version 1)
Quarter: 2019Q4

REPORT INFORMATION
  Report Type: Spontaneous
  Country: FR (occurrence: FR)
  Receive Date: 20191104
  Receipt Date: 20191104
  Transmission Date: 20200122
  Serious: Yes (Other)
  Sender: FDA-Public Use
  Company Number: FR-PFIZER INC-2019468709

PATIENT
  Age: 28 Year
  Sex: Male

DRUGS (3)
  1. BUPRENORPHINE. [Concomitant]
     Active Substance: BUPRENORPHINE
     Indication: DRUG WITHDRAWAL MAINTENANCE THERAPY
     Dosage: 24 MG, DAILY
     Route: 060
     Dates: start: 2009
  2. LYRICA [Suspect]
     Active Substance: PREGABALIN
     Indication: ANXIETY
     Dosage: 400 MG, DAILY
     Route: 048
     Dates: start: 20190501
  3. VALIUM [Concomitant]
     Active Substance: DIAZEPAM
     Dosage: 50 MG, DAILY
     Route: 048
     Dates: start: 2012

REACTIONS (2)
  - Drug abuse [Not Recovered/Not Resolved]
  - Disinhibition [Not Recovered/Not Resolved]

NARRATIVE: CASE EVENT DATE: 20190501
